FAERS Safety Report 4287320-9 (Version None)
Quarter: 2004Q1

REPORT INFORMATION
  Report Type: 
  Country: None (occurrence: None)
  Receive Date: 20040126
  Receipt Date: 20031002
  Transmission Date: 20041129
  Serious: No
  Sender: FDA-Public Use
  Company Number: USA030639164

PATIENT
  Age: 78 Year
  Sex: Female
  Weight: 60 kg

DRUGS (13)
  1. FORTEO [Suspect]
     Indication: OSTEOPOROSIS
     Dosage: 20 UG/DAY
     Dates: start: 20030603
  2. LORAZEPAM [Concomitant]
  3. CODEINE [Concomitant]
  4. OS-CAL [Concomitant]
  5. TUMS (CALCIUM CARBONATE) [Concomitant]
  6. VITAMIN D [Concomitant]
  7. TAGAMET [Concomitant]
  8. IBUPROFEN [Concomitant]
  9. QUININE [Concomitant]
  10. ROBAXIN [Concomitant]
  11. FIORICET [Concomitant]
  12. NASACORT [Concomitant]
  13. MULTIVITAMIN [Concomitant]

REACTIONS (11)
  - ARTHRALGIA [None]
  - ASTHENIA [None]
  - BREAST PAIN [None]
  - DISCOMFORT [None]
  - FATIGUE [None]
  - FEELING ABNORMAL [None]
  - HOT FLUSH [None]
  - HYPERHIDROSIS [None]
  - INJECTION SITE ERYTHEMA [None]
  - INJECTION SITE HAEMORRHAGE [None]
  - NAUSEA [None]
